FAERS Safety Report 7474055-4 (Version None)
Quarter: 2011Q2

REPORT INFORMATION
  Report Type: 
  Country: None (occurrence: None)
  Receive Date: 20110511
  Receipt Date: 20110211
  Transmission Date: 20111010
  Serious: Yes (Hospitalization, Other)
  Sender: FDA-Public Use
  Company Number: PHHY2011FR11838

PATIENT
  Age: 24 Year
  Sex: Male

DRUGS (6)
  1. VITAMIN E [Concomitant]
  2. ISONIAZID [Concomitant]
  3. FORMOTEROL FUMARATE [Suspect]
  4. PANCREAS EXTRACT [Concomitant]
  5. AZITHROMYCIN [Concomitant]
  6. INSULIN [Concomitant]

REACTIONS (15)
  - VITAL CAPACITY DECREASED [None]
  - WEIGHT DECREASED [None]
  - FORCED EXPIRATORY VOLUME DECREASED [None]
  - C-REACTIVE PROTEIN INCREASED [None]
  - ASTHENIA [None]
  - PAIN [None]
  - LYMPHADENOPATHY [None]
  - BLOOD ALKALINE PHOSPHATASE INCREASED [None]
  - TUBERCULOSIS [None]
  - OEDEMA PERIPHERAL [None]
  - RASH ERYTHEMATOUS [None]
  - BRONCHIECTASIS [None]
  - ANAEMIA [None]
  - GAMMA-GLUTAMYLTRANSFERASE INCREASED [None]
  - PYREXIA [None]
